FAERS Safety Report 15131076 (Version 4)
Quarter: 2019Q1

REPORT INFORMATION
  Report Type: Report from Study
  Country: US (occurrence: US)
  Receive Date: 20180711
  Receipt Date: 20190221
  Transmission Date: 20190417
  Serious: Yes (Life-Threatening, Other)
  Sender: FDA-Public Use
  Company Number: PHEH2018US026111

PATIENT
  Sex: Female

DRUGS (6)
  1. METHOTREXATE. [Concomitant]
     Active Substance: METHOTREXATE
     Indication: FIBROMYALGIA
     Route: 065
  2. COSENTYX [Suspect]
     Active Substance: SECUKINUMAB
     Indication: PSORIASIS
     Dosage: 300 MG, QMO
     Route: 058
     Dates: start: 201712
  3. COSENTYX [Suspect]
     Active Substance: SECUKINUMAB
     Indication: PSORIATIC ARTHROPATHY
     Dosage: 300 MG, Q3W
     Route: 058
  4. HUMIRA [Concomitant]
     Active Substance: ADALIMUMAB
     Indication: FIBROMYALGIA
     Route: 065
  5. OXYCODONE [Concomitant]
     Active Substance: OXYCODONE
     Indication: FIBROMYALGIA
     Route: 065
  6. STELARA [Concomitant]
     Active Substance: USTEKINUMAB
     Indication: FIBROMYALGIA
     Route: 065

REACTIONS (26)
  - General physical health deterioration [Unknown]
  - Burning sensation [Unknown]
  - Panic attack [Unknown]
  - Musculoskeletal stiffness [Unknown]
  - Scar [Unknown]
  - Wrong technique in product usage process [Unknown]
  - Photosensitivity reaction [Unknown]
  - Mobility decreased [Unknown]
  - Fall [Unknown]
  - Concussion [Unknown]
  - Fatigue [Unknown]
  - Sunburn [Unknown]
  - Arthralgia [Unknown]
  - Fibromyalgia [Unknown]
  - Pruritus [Unknown]
  - Therapeutic response shortened [Unknown]
  - Feeling abnormal [Unknown]
  - Arthritis [Unknown]
  - Pain [Unknown]
  - Psoriasis [Unknown]
  - Erythema [Unknown]
  - Product prescribing error [Unknown]
  - Hyperhidrosis [Unknown]
  - Discomfort [Unknown]
  - Joint stiffness [Unknown]
  - Cerebrovascular insufficiency [Unknown]
